FAERS Safety Report 9423872 (Version 2)
Quarter: 2016Q2

REPORT INFORMATION
  Report Type: Report from Study
  Country: US (occurrence: US)
  Receive Date: 20130729
  Receipt Date: 20160511
  Transmission Date: 20160815
  Serious: Yes (Other)
  Sender: FDA-Public Use
  Company Number: US-AMGEN-USASP2013052349

PATIENT
  Age: 32 Year
  Sex: Female

DRUGS (2)
  1. ENBREL [Suspect]
     Active Substance: ETANERCEPT
     Indication: RHEUMATOID ARTHRITIS
     Dosage: 25 MG, 2 TIMES/WK
     Route: 065
     Dates: start: 20060801, end: 201210
  2. ENBREL [Suspect]
     Active Substance: ETANERCEPT
     Dosage: UNK
     Route: 065
     Dates: start: 2015

REACTIONS (4)
  - Maternal exposure during pregnancy [Recovered/Resolved]
  - Premature separation of placenta [Recovered/Resolved]
  - Premature delivery [Recovered/Resolved]
  - Premature labour [Recovered/Resolved]

NARRATIVE: CASE EVENT DATE: 2012
